FAERS Safety Report 20801572 (Version 1)
Quarter: 2022Q2

REPORT INFORMATION
  Report Type: Spontaneous
  Country: GR (occurrence: GR)
  Receive Date: 20220509
  Receipt Date: 20220509
  Transmission Date: 20220721
  Serious: Yes (Other)
  Sender: FDA-Public Use
  Company Number: GR-AMNEAL PHARMACEUTICALS-2022-AMRX-01207

PATIENT
  Age: 74 Year
  Sex: Male

DRUGS (3)
  1. NEOSTIGMINE METHYLSULFATE [Interacting]
     Active Substance: NEOSTIGMINE METHYLSULFATE
     Indication: Intestinal pseudo-obstruction
     Dosage: 2.5 MILLIGRAM, LOADING DOSE WAS 2.5 MG OVER A FEW MINUTES
     Route: 042
  2. NEOSTIGMINE METHYLSULFATE [Interacting]
     Active Substance: NEOSTIGMINE METHYLSULFATE
     Dosage: 10 MILLIGRAM, 1 /DAY, MAINTENANCE DOSE
     Route: 042
  3. AMIODARONE [Interacting]
     Active Substance: AMIODARONE
     Indication: Atrial fibrillation
     Dosage: 1200 MILLIGRAM, 1 /DAY
     Route: 042

REACTIONS (2)
  - Drug interaction [Recovered/Resolved]
  - Atrioventricular block complete [Recovered/Resolved]
